FAERS Safety Report 5794157-8 (Version None)
Quarter: 2008Q2

REPORT INFORMATION
  Report Type: 
  Country: None (occurrence: None)
  Receive Date: 20080627
  Receipt Date: 20080619
  Transmission Date: 20081010
  Serious: Yes (Hospitalization, Disabling)
  Sender: FDA-Public Use
  Company Number: US-MERCK-0704USA05958

PATIENT
  Age: 51 Year
  Sex: Male

DRUGS (3)
  1. FOSAMAX [Suspect]
     Indication: OSTEOPOROSIS
     Route: 048
     Dates: start: 19980101
  2. FOSAMAX [Suspect]
     Route: 048
     Dates: start: 20020114, end: 20050101
  3. METHOTREXATE [Concomitant]
     Route: 065
     Dates: start: 19950101

REACTIONS (7)
  - ADVERSE EVENT [None]
  - BREATH ODOUR [None]
  - CARPAL TUNNEL SYNDROME [None]
  - FINGER DEFORMITY [None]
  - LOOSE TOOTH [None]
  - OSTEOPENIA [None]
  - RIB FRACTURE [None]
